FAERS Safety Report 4656399-4 (Version None)
Quarter: 2005Q2

REPORT INFORMATION
  Report Type: 
  Country: None (occurrence: None)
  Receive Date: 20050509
  Receipt Date: 20050425
  Transmission Date: 20051028
  Serious: Yes (Hospitalization)
  Sender: FDA-Public Use
  Company Number: US-MERCK-0504USA04682

PATIENT
  Age: 71 Year
  Sex: Female

DRUGS (10)
  1. VIOXX [Suspect]
     Indication: ARTHRITIS
     Route: 048
     Dates: start: 20020601, end: 20040720
  2. VIOXX [Suspect]
     Route: 048
     Dates: start: 20040101, end: 20041026
  3. VIOXX [Suspect]
     Indication: INFLAMMATION
     Route: 048
     Dates: start: 20020601, end: 20040720
  4. VIOXX [Suspect]
     Route: 048
     Dates: start: 20040101, end: 20041026
  5. PREMARIN [Concomitant]
     Route: 065
     Dates: end: 20040623
  6. PRILOSEC [Concomitant]
     Indication: GASTROOESOPHAGEAL REFLUX DISEASE
     Route: 065
  7. TYLENOL (CAPLET) [Concomitant]
     Route: 048
  8. CALCIUM (UNSPECIFIED) AND VITAMIN D (UNSPECIFIED) [Concomitant]
     Route: 048
  9. ASCORBIC ACID [Concomitant]
     Route: 048
  10. VITAMIN E [Concomitant]
     Route: 048

REACTIONS (26)
  - ANXIETY [None]
  - ASTHENIA [None]
  - CATARACT [None]
  - CEREBROVASCULAR ACCIDENT [None]
  - CRYING [None]
  - DIARRHOEA [None]
  - DIFFICULTY IN WALKING [None]
  - DROOLING [None]
  - EATING DISORDER [None]
  - FATIGUE [None]
  - GASTROENTERITIS VIRAL [None]
  - HYPERTENSION [None]
  - INSOMNIA [None]
  - MAJOR DEPRESSION [None]
  - MIGRAINE [None]
  - NAUSEA [None]
  - PANIC DISORDER [None]
  - PHOTOPSIA [None]
  - PRURITUS [None]
  - PSEUDOEXFOLIATION OF LENS CAPSULE [None]
  - SPEECH DISORDER [None]
  - STRESS [None]
  - SUICIDAL IDEATION [None]
  - TRANSIENT ISCHAEMIC ATTACK [None]
  - URTICARIA [None]
  - WEIGHT DECREASED [None]
